FAERS Safety Report 5167961-7 (Version None)
Quarter: 2006Q4

REPORT INFORMATION
  Report Type: 
  Country: None (occurrence: None)
  Receive Date: 20061208
  Receipt Date: 20051117
  Transmission Date: 20070319
  Serious: No
  Sender: FDA-Public Use
  Company Number: US-GLAXOSMITHKLINE-A0582755A

PATIENT
  Age: 65 Year
  Sex: Male

DRUGS (10)
  1. AVANDAMET [Suspect]
     Dosage: 1.5TAB VARIABLE DOSE
     Route: 048
  2. GLUCOTROL XL [Concomitant]
  3. VASOTEC [Concomitant]
  4. METOPROLOL SUCCINATE [Concomitant]
  5. PAXIL [Concomitant]
  6. VALIUM [Concomitant]
  7. PEPCID [Concomitant]
  8. ASPIRIN [Concomitant]
  9. PROSCAR [Concomitant]
  10. FLOMAX [Concomitant]

REACTIONS (1)
  - LIPASE INCREASED [None]
